FAERS Safety Report 22589376 (Version 7)
Quarter: 2023Q4

REPORT INFORMATION
  Report Type: Report from Study
  Country: GB (occurrence: GB)
  Receive Date: 20230612
  Receipt Date: 20231006
  Transmission Date: 20240110
  Serious: Yes (Death, Life-Threatening, Hospitalization)
  Sender: FDA-Public Use
  Company Number: GB-002147023-NVSC2023GB130854

PATIENT
  Age: 70 Year
  Sex: Male
  Weight: 85.4 kg

DRUGS (16)
  1. PLUVICTO [Suspect]
     Active Substance: LUTETIUM LU-177 VIPIVOTIDE TETRAXETAN
     Indication: Prostate cancer metastatic
     Dosage: 7400 MBQ, ONCE/SINGLE
     Route: 042
     Dates: start: 20220831, end: 20220831
  2. PLUVICTO [Suspect]
     Active Substance: LUTETIUM LU-177 VIPIVOTIDE TETRAXETAN
     Dosage: 7400 MBQ, ONCE/SINGLE
     Route: 042
     Dates: start: 20221013, end: 20221013
  3. PLUVICTO [Suspect]
     Active Substance: LUTETIUM LU-177 VIPIVOTIDE TETRAXETAN
     Dosage: 7400 MBQ, ONCE/SINGLE
     Route: 042
     Dates: start: 20221124, end: 20221124
  4. PLUVICTO [Suspect]
     Active Substance: LUTETIUM LU-177 VIPIVOTIDE TETRAXETAN
     Dosage: 7400 MBQ, ONCE/SINGLE
     Route: 042
     Dates: start: 20230105, end: 20230105
  5. PLUVICTO [Suspect]
     Active Substance: LUTETIUM LU-177 VIPIVOTIDE TETRAXETAN
     Dosage: 7400 MBQ, ONCE/SINGLE
     Route: 042
     Dates: start: 20230221, end: 20230221
  6. LOCAMETZ [Suspect]
     Active Substance: PSMA-HBED-CC
     Indication: Prostate cancer metastatic
     Dosage: 176 MBQ, ONCE/SINGLE
     Route: 042
     Dates: start: 20220805
  7. DECAPEPTYL [Concomitant]
     Indication: Hormone-refractory prostate cancer
     Dosage: UNK
     Route: 065
     Dates: start: 20201030
  8. ACETAMINOPHEN [Concomitant]
     Active Substance: ACETAMINOPHEN
     Indication: Analgesic therapy
     Dosage: UNK
     Route: 065
     Dates: start: 20220726
  9. VENTOLIN [Concomitant]
     Active Substance: ALBUTEROL SULFATE
     Indication: Asthma
     Dosage: UNK
     Route: 065
     Dates: start: 20221124
  10. DEXAMETHASONE [Concomitant]
     Active Substance: DEXAMETHASONE
     Indication: Prophylaxis
     Dosage: UNK
     Route: 065
     Dates: start: 20230105
  11. CALCIUM\CARBOXYMETHYLCELLULOSE\DEVICE\MAGNESIUM\POTASSIUM\SODIUM CL\SO [Concomitant]
     Active Substance: CALCIUM\CARBOXYMETHYLCELLULOSE\DEVICE\MAGNESIUM\POTASSIUM\SODIUM CL\SORBITOL
     Indication: Dry mouth
     Dosage: UNK
     Route: 065
     Dates: start: 20230220
  12. OMEPRAZOLE [Concomitant]
     Active Substance: OMEPRAZOLE
     Indication: Nausea
     Dosage: UNK
     Route: 065
     Dates: start: 20230403
  13. MOVICOL [Concomitant]
     Active Substance: POLYETHYLENE GLYCOL 3350\POTASSIUM CHLORIDE\SODIUM BICARBONATE\SODIUM CHLORIDE
     Indication: Constipation
     Dosage: UNK
     Route: 065
     Dates: start: 20230428
  14. DOCUSATE SODIUM [Concomitant]
     Active Substance: DOCUSATE SODIUM
     Indication: Constipation
     Dosage: UNK
     Route: 065
     Dates: start: 20230428
  15. MORPHINE SULFATE [Concomitant]
     Active Substance: MORPHINE SULFATE
     Indication: Bone pain
     Dosage: UNK
     Route: 065
     Dates: start: 20230429
  16. HALOPERIDOL [Concomitant]
     Active Substance: HALOPERIDOL
     Indication: Nausea
     Dosage: UNK
     Route: 065
     Dates: start: 20230502

REACTIONS (2)
  - Bone marrow failure [Fatal]
  - Thrombocytopenia [Not Recovered/Not Resolved]

NARRATIVE: CASE EVENT DATE: 20230525
